FAERS Safety Report 21880467 (Version 2)
Quarter: 2023Q1

REPORT INFORMATION
  Report Type: Spontaneous
  Country: PT (occurrence: PT)
  Receive Date: 20230118
  Receipt Date: 20230331
  Transmission Date: 20230418
  Serious: Yes (Hospitalization, Other)
  Sender: FDA-Public Use
  Company Number: PT-SA-2022SA491283

PATIENT
  Age: 78 Year
  Sex: Male

DRUGS (2)
  1. LEVOFLOXACIN [Suspect]
     Active Substance: LEVOFLOXACIN
     Indication: Product used for unknown indication
     Dosage: UNK, LEVOFLOXACIN WAS TAKEN INTRAVENOUSLY
     Route: 042
  2. LEVOFLOXACIN [Suspect]
     Active Substance: LEVOFLOXACIN
     Indication: Product used for unknown indication
     Dosage: 500 MG
     Route: 065

REACTIONS (8)
  - Leukocytosis [Recovering/Resolving]
  - Cutaneous vasculitis [Recovered/Resolved]
  - Condition aggravated [Recovering/Resolving]
  - Oedema peripheral [Recovered/Resolved]
  - Neutrophilia [Recovering/Resolving]
  - Purpura [Recovered/Resolved]
  - Acute kidney injury [Unknown]
  - Arthralgia [Recovering/Resolving]
